FAERS Safety Report 17467539 (Version 1)
Quarter: 2020Q1

REPORT INFORMATION
  Report Type: Spontaneous
  Country: US (occurrence: US)
  Receive Date: 20200227
  Receipt Date: 20200227
  Transmission Date: 20200409
  Serious: Yes (Hospitalization, Other)
  Sender: FDA-Public Use
  Company Number: US-BAYER-2020-032560

PATIENT
  Age: 38 Year
  Sex: Male

DRUGS (1)
  1. NAPROXEN SODIUM ({= 220 MG) [Suspect]
     Active Substance: NAPROXEN SODIUM

REACTIONS (6)
  - Syncope [None]
  - Faeces discoloured [None]
  - Peptic ulcer haemorrhage [None]
  - Haematochezia [None]
  - Melaena [None]
  - Haematemesis [None]
